FAERS Safety Report 23127999 (Version 1)
Quarter: 2023Q4

REPORT INFORMATION
  Report Type: Spontaneous
  Country: US (occurrence: US)
  Receive Date: 20231031
  Receipt Date: 20231031
  Transmission Date: 20240109
  Serious: Yes (Life-Threatening)
  Sender: FDA-Public Use
  Company Number: US-AMGEN-USASP2023191094

PATIENT
  Age: 30 Year
  Sex: Female

DRUGS (4)
  1. EVOLOCUMAB [Suspect]
     Active Substance: EVOLOCUMAB
     Indication: Type IIa hyperlipidaemia
     Dosage: UNK
     Route: 065
  2. EZETIMIBE [Concomitant]
     Active Substance: EZETIMIBE
     Indication: Type IIa hyperlipidaemia
     Dosage: UNK
     Route: 065
  3. CHOLESTYRAMINE [Concomitant]
     Active Substance: CHOLESTYRAMINE
     Indication: Type IIa hyperlipidaemia
     Dosage: UNK
     Route: 065
  4. NIACIN [Concomitant]
     Active Substance: NIACIN
     Indication: Type IIa hyperlipidaemia
     Dosage: UNK
     Route: 065

REACTIONS (6)
  - Complication associated with device [Recovered/Resolved]
  - Sepsis [Recovered/Resolved]
  - Superior vena cava syndrome [Recovered/Resolved]
  - Pulmonary embolism [Recovered/Resolved]
  - Adverse drug reaction [Unknown]
  - Drug intolerance [Unknown]
